FAERS Safety Report 19632416 (Version 1)
Quarter: 2021Q3

REPORT INFORMATION
  Report Type: Spontaneous
  Country: GB (occurrence: GB)
  Receive Date: 20210729
  Receipt Date: 20210729
  Transmission Date: 20211014
  Serious: Yes (Hospitalization)
  Sender: FDA-Public Use
  Company Number: GB-GUERBET-GB-20210094

PATIENT
  Age: 53 Year
  Sex: Female
  Weight: 82.55 kg

DRUGS (1)
  1. DOTAREM [Suspect]
     Active Substance: GADOTERATE MEGLUMINE
     Indication: SCAN
     Route: 042
     Dates: start: 20210703, end: 20210703

REACTIONS (5)
  - Ocular hyperaemia [Unknown]
  - Throat irritation [Unknown]
  - Eye swelling [Recovered/Resolved]
  - Cough [Unknown]
  - Lip swelling [Unknown]

NARRATIVE: CASE EVENT DATE: 20210703
